FAERS Safety Report 6373835-6 (Version None)
Quarter: 2009Q3

REPORT INFORMATION
  Report Type: 
  Country: None (occurrence: None)
  Receive Date: 20090924
  Receipt Date: 20090609
  Transmission Date: 20100115
  Serious: No
  Sender: FDA-Public Use
  Company Number: US-ASTRAZENECA-2009UW14807

PATIENT
  Age: 40 Year
  Sex: Female
  Weight: 74.8 kg

DRUGS (4)
  1. SEROQUEL [Suspect]
     Indication: INSOMNIA
     Route: 048
     Dates: start: 20080701
  2. LEVOTHYROXINE SODIUM [Concomitant]
  3. KLONOPIN [Concomitant]
  4. ALBUTEROL [Concomitant]

REACTIONS (7)
  - DRUG INEFFECTIVE FOR UNAPPROVED INDICATION [None]
  - HYPOTHYROIDISM [None]
  - INSOMNIA [None]
  - LOSS OF LIBIDO [None]
  - MENSTRUATION IRREGULAR [None]
  - MOOD SWINGS [None]
  - WEIGHT INCREASED [None]
